FAERS Safety Report 12602749 (Version 3)
Quarter: 2016Q3

REPORT INFORMATION
  Report Type: Spontaneous
  Country: BR (occurrence: BR)
  Receive Date: 20160728
  Receipt Date: 20160824
  Transmission Date: 20161109
  Serious: Yes (Other)
  Sender: FDA-Public Use
  Company Number: BR-PFIZER INC-2016326813

PATIENT
  Age: 53 Year
  Sex: Female

DRUGS (5)
  1. XALATAN [Suspect]
     Active Substance: LATANOPROST
     Dosage: 1 DROP ON EACH EYE ONCE A DAY
     Route: 047
     Dates: start: 20160428
  2. XALATAN [Suspect]
     Active Substance: LATANOPROST
     Indication: GLAUCOMA
     Dosage: UNK
     Route: 047
     Dates: start: 201403, end: 201410
  3. ALPHAGAN P [Suspect]
     Active Substance: BRIMONIDINE TARTRATE
     Indication: GLAUCOMA
     Dosage: ONE DROP ON EACH EYE TWICE A DAY
     Route: 047
  4. LACRIMA PLUS [Concomitant]
     Active Substance: DEXTRAN 70\HYPROMELLOSES
     Indication: GLAUCOMA
     Dosage: FOUR TIMES A DAY, ONE DROP ON EACH EYE
     Route: 047
  5. XALATAN [Suspect]
     Active Substance: LATANOPROST
     Dosage: 1 DROP ON EACH EYE ONCE A DAY
     Route: 047
     Dates: start: 201510

REACTIONS (6)
  - Drug hypersensitivity [Not Recovered/Not Resolved]
  - Vision blurred [Not Recovered/Not Resolved]
  - Visual field defect [Not Recovered/Not Resolved]
  - Ocular discomfort [Not Recovered/Not Resolved]
  - Drug ineffective [Recovered/Resolved]
  - Ocular hyperaemia [Not Recovered/Not Resolved]
